FAERS Safety Report 24643727 (Version 2)
Quarter: 2024Q4

REPORT INFORMATION
  Report Type: Report from Study
  Country: CN (occurrence: CN)
  Receive Date: 20241120
  Receipt Date: 20241202
  Transmission Date: 20250115
  Serious: Yes (Death, Other)
  Sender: PFIZER
  Company Number: CN-TAKEDA-2022TUS079909

PATIENT
  Age: 65 Year
  Sex: Female
  Weight: 60 kg

DRUGS (10)
  1. ADCETRIS [Suspect]
     Active Substance: BRENTUXIMAB VEDOTIN
     Indication: Anaplastic large cell lymphoma T- and null-cell types
     Dosage: 100 MILLIGRAM, Q3WEEKS
     Route: 041
     Dates: start: 20220909
  2. EPIRUBICIN HYDROCHLORIDE [Suspect]
     Active Substance: EPIRUBICIN HYDROCHLORIDE
     Indication: Lymphoma
     Dosage: 100 MILLIGRAM, QD
     Route: 042
     Dates: start: 20220909, end: 20230909
  3. DEXAMETHASONE SODIUM PHOSPHATE [Suspect]
     Active Substance: DEXAMETHASONE SODIUM PHOSPHATE
     Indication: Lymphoma
     Dosage: 15 MILLIGRAM, QD
     Route: 042
     Dates: start: 20220909, end: 20220913
  4. CYCLOPHOSPHAMIDE [Suspect]
     Active Substance: CYCLOPHOSPHAMIDE
     Indication: Lymphoma
     Dosage: 1.2 GRAM, QD
     Route: 042
     Dates: start: 20220909, end: 20220909
  5. THIOTEPA [Concomitant]
     Active Substance: THIOTEPA
     Indication: Lymphoma
     Dosage: 50 MILLIGRAM, QD
     Route: 042
     Dates: start: 20220910, end: 20220910
  6. VALACYCLOVIR HYDROCHLORIDE [Concomitant]
     Active Substance: VALACYCLOVIR HYDROCHLORIDE
     Indication: Prophylaxis
     Dosage: UNK UNK, BID
     Route: 048
     Dates: start: 20220912
  7. LEVAMLODIPINE BESYLATE [Concomitant]
     Active Substance: LEVAMLODIPINE BESYLATE
     Indication: Hypertension
     Dosage: 2.5 MILLIGRAM, QD
     Route: 048
  8. LOSARTAN POTASSIUM AND HYDROCHLOROTHIAZIDE [Concomitant]
     Active Substance: HYDROCHLOROTHIAZIDE\LOSARTAN POTASSIUM
     Indication: Hypertension
     Dosage: UNK UNK, QD
     Route: 048
  9. TROPISETRON HYDROCHLORIDE [Concomitant]
     Active Substance: TROPISETRON HYDROCHLORIDE
     Indication: Antiemetic supportive care
     Dosage: 5 MILLIGRAM
     Route: 042
     Dates: start: 20220909, end: 20220910
  10. DEXRAZOXANE [Concomitant]
     Active Substance: DEXRAZOXANE
     Indication: Core decompression
     Dosage: 1000 MILLIGRAM
     Route: 042
     Dates: start: 20220909, end: 20220909

REACTIONS (11)
  - Death [Fatal]
  - Hepatic failure [Not Recovered/Not Resolved]
  - Myelosuppression [Not Recovered/Not Resolved]
  - Pneumonia klebsiella [Recovered/Resolved]
  - Ventricular extrasystoles [Not Recovered/Not Resolved]
  - Left ventricular dysfunction [Not Recovered/Not Resolved]
  - Pulmonary mass [Not Recovered/Not Resolved]
  - Febrile infection [Recovered/Resolved]
  - Eye infection [Recovered/Resolved]
  - Stomatitis [Recovered/Resolved]
  - Off label use [Recovered/Resolved]

NARRATIVE: CASE EVENT DATE: 20220909
